FAERS Safety Report 23306813 (Version 1)
Quarter: 2023Q4

REPORT INFORMATION
  Report Type: Spontaneous
  Country: US (occurrence: US)
  Receive Date: 20231218
  Receipt Date: 20231218
  Transmission Date: 20240109
  Serious: No
  Sender: FDA-Public Use
  Company Number: US-RECKITT BENCKISER HEALTHCARE INT LIMITED-RB-106367-2022

PATIENT
  Sex: Male

DRUGS (1)
  1. DELSYM [Suspect]
     Active Substance: DEXTROMETHORPHAN
     Indication: Antitussive therapy
     Dosage: TOOK 30 ML
     Route: 065

REACTIONS (5)
  - Overdose [Unknown]
  - Dizziness [Recovering/Resolving]
  - Autoscopy [Recovering/Resolving]
  - Wrong technique in product usage process [Recovering/Resolving]
  - Accidental overdose [Recovering/Resolving]
